FAERS Safety Report 24353425 (Version 1)
Quarter: 2024Q3

REPORT INFORMATION
  Report Type: Spontaneous
  Country: GB (occurrence: GB)
  Receive Date: 20240923
  Receipt Date: 20240923
  Transmission Date: 20241016
  Serious: No
  Sender: ROCHE
  Company Number: GB-ROCHE-3455587

PATIENT
  Age: 57 Year
  Sex: Male

DRUGS (6)
  1. TRASTUZUMAB [Suspect]
     Active Substance: TRASTUZUMAB
     Indication: Product used for unknown indication
     Route: 065
  2. ENALAPRIL [Concomitant]
     Active Substance: ENALAPRIL
  3. BENDROFLUMETHIAZIDE [Concomitant]
     Active Substance: BENDROFLUMETHIAZIDE
  4. EPIRUBICIN [Concomitant]
     Active Substance: EPIRUBICIN
  5. CISPLATIN [Concomitant]
     Active Substance: CISPLATIN
  6. CAPECITABINE [Concomitant]
     Active Substance: CAPECITABINE

REACTIONS (5)
  - Dysphagia [Unknown]
  - Blood pressure abnormal [Unknown]
  - Ejection fraction decreased [Unknown]
  - Wall motion score index abnormal [Unknown]
  - Global longitudinal strain abnormal [Unknown]
